FAERS Safety Report 11638970 (Version 2)
Quarter: 2015Q4

REPORT INFORMATION
  Report Type: Spontaneous
  Country: KR (occurrence: KR)
  Receive Date: 20151018
  Receipt Date: 20151028
  Transmission Date: 20160304
  Serious: Yes (Death, Hospitalization)
  Sender: FDA-Public Use
  Company Number: KR-AMGEN-KORCT2015109204

PATIENT
  Age: 74 Year
  Sex: Male
  Weight: 64.8 kg

DRUGS (24)
  1. G-LASTA [Suspect]
     Active Substance: PEGFILGRASTIM
     Dosage: 6 MG, 1X/3WEEKS
     Route: 058
     Dates: start: 20150924
  2. CYCLOPHOSPHAMIDE. [Concomitant]
     Active Substance: CYCLOPHOSPHAMIDE
     Dosage: 939.38 MG, UNK
     Route: 042
     Dates: start: 20150923, end: 20150923
  3. DOXORUBICIN [Concomitant]
     Active Substance: DOXORUBICIN
     Dosage: 62.25 MG, UNK
     Route: 042
     Dates: start: 20150824, end: 20150824
  4. PREDNISOLONE. [Concomitant]
     Active Substance: PREDNISOLONE
     Dosage: 60 MG, UNK
     Route: 048
     Dates: start: 20150923, end: 20150923
  5. RITUXIMAB [Concomitant]
     Active Substance: RITUXIMAB
     Dosage: 622.5 MG, UNK
     Route: 042
     Dates: start: 20150824, end: 20150824
  6. RITUXIMAB [Concomitant]
     Active Substance: RITUXIMAB
     Dosage: 626.25 MG, UNK
     Route: 042
     Dates: start: 20150923, end: 20150923
  7. CYCLOPHOSPHAMIDE. [Concomitant]
     Active Substance: CYCLOPHOSPHAMIDE
     Dosage: 933.75 MG, UNK
     Route: 042
     Dates: start: 20150824, end: 20150824
  8. DOXORUBICIN [Concomitant]
     Active Substance: DOXORUBICIN
     Dosage: 62.63 MG, UNK
     Route: 042
     Dates: start: 20150923, end: 20150923
  9. DOXORUBICIN [Concomitant]
     Active Substance: DOXORUBICIN
     Dosage: 2 MG, UNK
     Route: 042
     Dates: start: 20150923, end: 20150923
  10. CYCLOPHOSPHAMIDE. [Concomitant]
     Active Substance: CYCLOPHOSPHAMIDE
     Dosage: 1297.5 MG, UNK
     Route: 042
     Dates: start: 20150709, end: 20150709
  11. CYCLOPHOSPHAMIDE. [Concomitant]
     Active Substance: CYCLOPHOSPHAMIDE
     Dosage: 956.25 MG, UNK
     Route: 043
     Dates: start: 20150730, end: 20150730
  12. G-LASTA [Suspect]
     Active Substance: PEGFILGRASTIM
     Dosage: 6 MG, 1X/3WEEKS
     Route: 058
     Dates: start: 20150825
  13. RITUXIMAB [Concomitant]
     Active Substance: RITUXIMAB
     Dosage: 648.75 MG, UNK
     Route: 042
     Dates: start: 20150709, end: 20150709
  14. DOXORUBICIN [Concomitant]
     Active Substance: DOXORUBICIN
     Dosage: 63.75 MG, UNK
     Route: 042
     Dates: start: 20150730, end: 20150730
  15. PREDNISOLONE. [Concomitant]
     Active Substance: PREDNISOLONE
     Dosage: 60 MG, UNK
     Route: 048
     Dates: start: 20150730, end: 20150730
  16. PREDNISOLONE. [Concomitant]
     Active Substance: PREDNISOLONE
     Dosage: 60 MG, UNK
     Route: 048
     Dates: start: 20150824, end: 20150824
  17. DOXORUBICIN [Concomitant]
     Active Substance: DOXORUBICIN
     Dosage: 86.5 MG, UNK
     Route: 042
     Dates: start: 20150709, end: 20150709
  18. VINCRISTINE [Concomitant]
     Active Substance: VINCRISTINE
     Dosage: 2 MG, UNK
     Route: 042
     Dates: start: 20150730, end: 20150730
  19. VINCRISTINE [Concomitant]
     Active Substance: VINCRISTINE
     Dosage: 2 MG, UNK
     Route: 042
     Dates: start: 20150824, end: 20150824
  20. G-LASTA [Suspect]
     Active Substance: PEGFILGRASTIM
     Indication: FEBRILE NEUTROPENIA
     Dosage: 6 MG, 1X/3WEEKS
     Route: 058
     Dates: start: 20150710
  21. G-LASTA [Suspect]
     Active Substance: PEGFILGRASTIM
     Dosage: 6 MG, 1X/3WEEKS
     Route: 058
     Dates: start: 20150731
  22. PREDNISOLONE. [Concomitant]
     Active Substance: PREDNISOLONE
     Dosage: 60 MG, UNK
     Route: 048
     Dates: start: 20150709, end: 20150709
  23. RITUXIMAB [Concomitant]
     Active Substance: RITUXIMAB
     Dosage: 637.5 MG, UNK
     Route: 042
     Dates: start: 20150730, end: 20150730
  24. VINCRISTINE [Concomitant]
     Active Substance: VINCRISTINE
     Dosage: 2 MG, UNK
     Route: 042
     Dates: start: 20150709, end: 20150709

REACTIONS (2)
  - Oesophageal varices haemorrhage [Fatal]
  - Neutropenia [Fatal]

NARRATIVE: CASE EVENT DATE: 20151001
